FAERS Safety Report 8984949 (Version 2)
Quarter: 2013Q1

REPORT INFORMATION
  Report Type: Spontaneous
  Country: US (occurrence: US)
  Receive Date: 20121226
  Receipt Date: 20130131
  Transmission Date: 20140127
  Serious: No
  Sender: FDA-Public Use
  Company Number: US-PFIZER INC-2012324940

PATIENT
  Age: 66 Year
  Sex: Male
  Weight: 72 kg

DRUGS (6)
  1. LIPITOR [Suspect]
     Indication: BLOOD DISORDER
     Dosage: 20 MG, DAILY
     Route: 048
     Dates: end: 201212
  2. GLUCOTROL [Suspect]
     Dosage: 10 MG, DAILY
     Route: 048
  3. GLUCOTROL [Suspect]
     Dosage: 5 MG, DAILY
     Route: 048
     Dates: end: 201212
  4. VIAGRA [Suspect]
     Indication: SEXUALLY ACTIVE
     Dosage: 25 MG, EVERY TWO DAYS
     Route: 048
     Dates: start: 2010
  5. VIAGRA [Suspect]
     Dosage: 100 MG, EVERY TWO DAYS
     Route: 048
  6. GLUCOPHAGE [Suspect]
     Indication: BLOOD GLUCOSE ABNORMAL
     Dosage: 1000 MG, 2X/DAY
     Route: 048
     Dates: end: 201212

REACTIONS (2)
  - Dizziness [Not Recovered/Not Resolved]
  - Malaise [Not Recovered/Not Resolved]
